FAERS Safety Report 4897237-4 (Version None)
Quarter: 2006Q1

REPORT INFORMATION
  Report Type: 
  Country: None (occurrence: None)
  Receive Date: 20060127
  Receipt Date: 20060106
  Transmission Date: 20060701
  Serious: Yes (Hospitalization)
  Sender: FDA-Public Use
  Company Number: US_0509121792

PATIENT
  Age: 47 Year
  Sex: Male
  Weight: 97.5 kg

DRUGS (1)
  1. ZYPREXA [Suspect]
     Indication: MENTAL DISORDER
     Dosage: 7.5 MG, ORAL
     Route: 048
     Dates: start: 19960101, end: 19980101

REACTIONS (5)
  - BLOOD CHOLESTEROL ABNORMAL [None]
  - CARDIAC DISORDER [None]
  - DIABETES MELLITUS [None]
  - HYPERTENSION [None]
  - PSYCHIATRIC SYMPTOM [None]
